FAERS Safety Report 5454165-3 (Version None)
Quarter: 2007Q3

REPORT INFORMATION
  Report Type: 
  Country: None (occurrence: None)
  Receive Date: 20070917
  Receipt Date: 20070330
  Transmission Date: 20080115
  Serious: Yes (Other)
  Sender: FDA-Public Use
  Company Number: US-ASTRAZENECA-2006UW11056

PATIENT
  Sex: Male
  Weight: 140 kg

DRUGS (4)
  1. SEROQUEL [Suspect]
     Indication: DEPRESSION
     Route: 048
     Dates: start: 19961101, end: 19990801
  2. SEROQUEL [Suspect]
     Indication: ATTENTION DEFICIT/HYPERACTIVITY DISORDER
     Route: 048
     Dates: start: 19961101, end: 19990801
  3. SEROQUEL [Suspect]
     Route: 048
     Dates: start: 19961101, end: 19990801
  4. ZYPREXA [Concomitant]
     Dates: start: 19961101, end: 19990801

REACTIONS (2)
  - DIABETES MELLITUS [None]
  - DIABETIC COMA [None]
